FAERS Safety Report 17516640 (Version 2)
Quarter: 2020Q2

REPORT INFORMATION
  Report Type: Spontaneous
  Country: JP (occurrence: JP)
  Receive Date: 20200309
  Receipt Date: 20200601
  Transmission Date: 20200713
  Serious: Yes (Hospitalization)
  Sender: FDA-Public Use
  Company Number: JP-PFIZER INC-2020050910

PATIENT
  Age: 79 Year
  Sex: Male

DRUGS (6)
  1. CEFTRIAXONE SODIUM. [Concomitant]
     Active Substance: CEFTRIAXONE SODIUM
     Indication: CLOSTRIDIUM DIFFICILE INFECTION
     Dosage: UNK
  2. MEROPENEM. [Interacting]
     Active Substance: MEROPENEM
     Indication: CLOSTRIDIUM DIFFICILE INFECTION
     Dosage: UNK (DAY -6 TO DAY -1)/(AND DAY 2 AND DAY 3)
  3. VANCOMYCIN [Concomitant]
     Active Substance: VANCOMYCIN
     Indication: CLOSTRIDIUM DIFFICILE INFECTION
     Dosage: 2 G, DAILY (INITIATED ON DAY 4)
  4. MOXIFLOXACIN. [Concomitant]
     Active Substance: MOXIFLOXACIN
     Indication: CLOSTRIDIUM DIFFICILE INFECTION
     Dosage: UNK
  5. METRONIDAZOLE. [Suspect]
     Active Substance: METRONIDAZOLE
     Indication: CLOSTRIDIUM DIFFICILE INFECTION
     Dosage: 1000 MG, DAILY (SET AS DAY 1)
     Route: 048
  6. WARFARIN [Interacting]
     Active Substance: WARFARIN
     Indication: DEEP VEIN THROMBOSIS
     Dosage: 2 MG, UNK

REACTIONS (3)
  - International normalised ratio increased [Unknown]
  - Drug interaction [Unknown]
  - Prothrombin time prolonged [Unknown]
